FAERS Safety Report 20505740 (Version 1)
Quarter: 2022Q1

REPORT INFORMATION
  Report Type: Spontaneous
  Country: US (occurrence: None)
  Receive Date: 20220223
  Receipt Date: 20220223
  Transmission Date: 20220423
  Serious: No
  Sender: FDA-Public Use
  Company Number: US-Hikma Pharmaceuticals USA Inc.-US-H14001-21-03460

PATIENT
  Sex: Female

DRUGS (1)
  1. FLUTICASONE PROPIONATE [Suspect]
     Active Substance: FLUTICASONE PROPIONATE
     Indication: Product used for unknown indication
     Dosage: TWO TIMES IN EACH NOSTRIL ONCE A DAY, IN THE MORNING
     Route: 045

REACTIONS (5)
  - Discomfort [Unknown]
  - Nasal discomfort [Unknown]
  - Feeling abnormal [Unknown]
  - Ear discomfort [Unknown]
  - Foreign body in ear [Unknown]
